FAERS Safety Report 26198804 (Version 1)
Quarter: 2025Q4

REPORT INFORMATION
  Report Type: Spontaneous
  Country: GB (occurrence: GB)
  Receive Date: 20251225
  Receipt Date: 20251225
  Transmission Date: 20260118
  Serious: Yes (Other)
  Sender: GLAXOSMITHKLINE
  Company Number: None

PATIENT
  Age: 54 Year
  Sex: Female

DRUGS (1)
  1. MALARONE [Suspect]
     Active Substance: ATOVAQUONE\PROGUANIL HYDROCHLORIDE
     Indication: Product used for unknown indication
     Dosage: 1 DF
     Route: 065

REACTIONS (3)
  - Haematemesis [Recovered/Resolved with Sequelae]
  - Increased viscosity of upper respiratory secretion [Recovered/Resolved with Sequelae]
  - Headache [Recovering/Resolving]

NARRATIVE: CASE EVENT DATE: 20251218
